FAERS Safety Report 12378428 (Version 1)
Quarter: 2016Q2

REPORT INFORMATION
  Report Type: Spontaneous
  Country: US (occurrence: US)
  Receive Date: 20160517
  Receipt Date: 20160517
  Transmission Date: 20160815
  Serious: No
  Sender: FDA-Public Use
  Company Number: US-TEIKOKU PHARMA USA-TPU2016-00074

PATIENT
  Age: 66 Year
  Sex: Female
  Weight: 114.41 kg

DRUGS (26)
  1. ZOLOFT [Concomitant]
     Active Substance: SERTRALINE HYDROCHLORIDE
     Indication: DEPRESSION
  2. WELLBUTRIN [Concomitant]
     Active Substance: BUPROPION HYDROCHLORIDE
     Indication: DEPRESSION
  3. GLUCOSAMINE [Concomitant]
     Active Substance: GLUCOSAMINE
  4. VASOTEC [Concomitant]
     Active Substance: ENALAPRIL MALEATE
     Indication: HYPERTENSION
  5. PRAVACHOL [Concomitant]
     Active Substance: PRAVASTATIN SODIUM
     Indication: BLOOD CHOLESTEROL INCREASED
  6. SYNTHROID [Concomitant]
     Active Substance: LEVOTHYROXINE SODIUM
     Indication: HYPOTHYROIDISM
  7. PROVIGIL [Concomitant]
     Active Substance: MODAFINIL
     Indication: SOMNOLENCE
  8. FLEXERIL [Concomitant]
     Active Substance: CYCLOBENZAPRINE HYDROCHLORIDE
     Indication: PAIN
     Dosage: TWO PER DAY, AS NEEDED
  9. CALCIUM CITRATE WITH VITAMIN D [Concomitant]
     Active Substance: CALCIUM CITRATE\VITAMIN D
     Indication: OSTEOPENIA
  10. ARGON IRON WITH VITAMIN C [Concomitant]
     Indication: IRON DEFICIENCY
  11. ABILIFY [Concomitant]
     Active Substance: ARIPIPRAZOLE
     Indication: DEPRESSION
  12. BENGAY ARTHRITIS PAIN RELIEVING [Concomitant]
     Active Substance: MENTHOL\METHYL SALICYLATE
  13. VITAMIN B12 [Concomitant]
     Active Substance: CYANOCOBALAMIN
     Indication: VITAMIN B12 DEFICIENCY
  14. ZINC [Concomitant]
     Active Substance: ZINC\ZINC CHLORIDE
     Indication: ZINC DEFICIENCY
  15. FLONASE [Concomitant]
     Active Substance: FLUTICASONE PROPIONATE
     Indication: SEASONAL ALLERGY
     Dosage: ONE SPRAY, EACH NOSTRIL, TWICE PER DAY
  16. TYLENOL [Concomitant]
     Active Substance: ACETAMINOPHEN
     Indication: PAIN
  17. ALLED-D [Concomitant]
     Indication: ORAL HERPES
  18. NORCO [Concomitant]
     Active Substance: ACETAMINOPHEN\HYDROCODONE BITARTRATE
     Indication: PAIN
  19. BIOFREEZE [Concomitant]
     Active Substance: MENTHOL
     Indication: ARTHRALGIA
  20. ALLERGRA [Concomitant]
     Indication: SEASONAL ALLERGY
  21. PROVENTIL [Concomitant]
     Active Substance: ALBUTEROL
     Indication: ASTHMA
     Dosage: 2 PUFFS, 4 TIMES DAILY, AS NEEDED
  22. BETA-CAROTENE [Concomitant]
  23. VITAMIN B6 [Concomitant]
     Active Substance: PYRIDOXINE HYDROCHLORIDE
     Indication: VITAMIN B6 DEFICIENCY
  24. MULTI-VIT [Concomitant]
     Active Substance: VITAMINS
     Indication: SHORT-BOWEL SYNDROME
  25. LIDODERM [Suspect]
     Active Substance: LIDOCAINE
     Indication: SCIATICA
     Dosage: 1-2 PATCHES
     Route: 061
     Dates: start: 2011
  26. VITAMIN D3 [Concomitant]
     Active Substance: CHOLECALCIFEROL
     Indication: VITAMIN D DEFICIENCY

REACTIONS (2)
  - Intervertebral disc protrusion [Not Recovered/Not Resolved]
  - Spinal column stenosis [Not Recovered/Not Resolved]

NARRATIVE: CASE EVENT DATE: 201112
